FAERS Safety Report 7359859-0 (Version None)
Quarter: 2011Q1

REPORT INFORMATION
  Report Type: 
  Country: None (occurrence: None)
  Receive Date: 20110317
  Receipt Date: 20110314
  Transmission Date: 20110831
  Serious: Yes (Life-Threatening)
  Sender: FDA-Public Use
  Company Number: PHHY2011US11847

PATIENT
  Sex: Male
  Weight: 71.77 kg

DRUGS (11)
  1. TYLENOL-500 [Concomitant]
  2. ACYCLOVIR [Concomitant]
  3. ASPIRIN [Concomitant]
  4. LASIX [Concomitant]
  5. VITAMIN B6 [Concomitant]
  6. EXJADE [Suspect]
     Indication: IRON METABOLISM DISORDER
     Dosage: 1500 MG, DAILY
     Route: 048
     Dates: start: 20101018
  7. ALIGN [Concomitant]
     Dosage: UNK
  8. COLACE [Concomitant]
  9. PROCRIT [Concomitant]
  10. CHEMOTHERAPEUTICS NOS [Concomitant]
  11. PRILOSEC [Concomitant]

REACTIONS (2)
  - ACUTE LEUKAEMIA [None]
  - MALAISE [None]
